FAERS Safety Report 17806476 (Version 2)
Quarter: 2020Q2

REPORT INFORMATION
  Report Type: Spontaneous
  Country: NO (occurrence: NO)
  Receive Date: 20200520
  Receipt Date: 20200605
  Transmission Date: 20200714
  Serious: Yes (Other)
  Sender: FDA-Public Use
  Company Number: NO-TEVA-2020-NO-1238811

PATIENT
  Sex: Female

DRUGS (1)
  1. AJOVY [Suspect]
     Active Substance: FREMANEZUMAB-VFRM
     Indication: MIGRAINE
     Dosage: THE SECOND SYRINGE ON 13-MAY
     Route: 065

REACTIONS (6)
  - Breast tenderness [Unknown]
  - Postmenopausal haemorrhage [Unknown]
  - Alopecia [Unknown]
  - Hormone level abnormal [Unknown]
  - Discharge [Unknown]
  - Acne [Unknown]
